FAERS Safety Report 10347319 (Version 2)
Quarter: 2014Q3

REPORT INFORMATION
  Report Type: Spontaneous
  Country: US (occurrence: US)
  Receive Date: 20140729
  Receipt Date: 20140916
  Transmission Date: 20150326
  Serious: No
  Sender: FDA-Public Use
  Company Number: US-PFIZER INC-2014210935

PATIENT
  Age: 46 Year
  Sex: Male

DRUGS (1)
  1. XELJANZ [Suspect]
     Active Substance: TOFACITINIB CITRATE
     Indication: RHEUMATOID ARTHRITIS
     Dosage: 5MG (1 TABLET) TWICE DAILY
     Route: 048
     Dates: start: 20140516, end: 20140617

REACTIONS (3)
  - Headache [Recovered/Resolved]
  - Hypersensitivity [Unknown]
  - Diarrhoea [Recovered/Resolved]
